FAERS Safety Report 8611477-X (Version None)
Quarter: 2012Q3

REPORT INFORMATION
  Report Type: 
  Country: None (occurrence: None)
  Receive Date: 20120822
  Receipt Date: 20120815
  Transmission Date: 20120928
  Serious: Yes (Other)
  Sender: FDA-Public Use
  Company Number: US-PFIZER INC-2012201004

PATIENT
  Age: 45 Year
  Sex: Female
  Weight: 136 kg

DRUGS (5)
  1. LYRICA [Suspect]
     Indication: FIBROMYALGIA
     Dosage: 200 MG, 2X/DAY
  2. METFORMIN [Concomitant]
     Indication: DIABETES MELLITUS
     Dosage: 1000 MG, DAILY
  3. LYRICA [Suspect]
     Indication: MYOFASCIAL PAIN SYNDROME
     Dosage: 200 MG, 2X/DAY
     Dates: start: 20120801
  4. ULTRAM [Suspect]
     Indication: MUSCULOSKELETAL CHEST PAIN
     Dosage: 20 MG, UNK
     Dates: start: 20120801
  5. LYRICA [Suspect]
     Indication: NEUROPATHY PERIPHERAL
     Dosage: 400 MG, 2X/DAY
     Dates: start: 20120801, end: 20120801

REACTIONS (6)
  - DYSPNOEA [None]
  - BACK PAIN [None]
  - PAIN IN EXTREMITY [None]
  - DRUG INEFFECTIVE [None]
  - MUSCULOSKELETAL CHEST PAIN [None]
  - DRUG ADMINISTRATION ERROR [None]
